FAERS Safety Report 18742147 (Version 4)
Quarter: 2022Q1

REPORT INFORMATION
  Report Type: Report from Study
  Country: CA (occurrence: CA)
  Receive Date: 20210114
  Receipt Date: 20220126
  Transmission Date: 20220424
  Serious: Yes (Other)
  Sender: FDA-Public Use
  Company Number: CA-TAKEDA-2020TUS058204

PATIENT
  Age: 27 Year
  Sex: Female

DRUGS (7)
  1. LANADELUMAB [Suspect]
     Active Substance: LANADELUMAB
     Indication: Hereditary angioedema with C1 esterase inhibitor deficiency
     Dosage: 300 MILLIGRAM, Q2WEEKS
     Route: 065
     Dates: start: 20201210
  2. LANADELUMAB [Suspect]
     Active Substance: LANADELUMAB
     Dosage: 30MG/2ML, Q2WEEKS
     Route: 065
     Dates: start: 20201210
  3. LANADELUMAB [Suspect]
     Active Substance: LANADELUMAB
     Dosage: 30MG/2ML, Q2WEEKS
     Route: 065
     Dates: start: 20201210
  4. FIRAZYR [Suspect]
     Active Substance: ICATIBANT ACETATE
     Indication: Product used for unknown indication
     Dosage: 30 MILLIGRAM, PRN
     Route: 058
     Dates: start: 20201210
  5. FIRAZYR [Suspect]
     Active Substance: ICATIBANT ACETATE
     Indication: Product used for unknown indication
     Dosage: 30 MILLIGRAM, PRN
     Route: 058
     Dates: start: 20201210
  6. ALESSE 28 [Concomitant]
     Active Substance: ETHINYL ESTRADIOL\LEVONORGESTREL
     Dosage: UNK
     Route: 065
  7. CITALOPRAM [Concomitant]
     Active Substance: CITALOPRAM HYDROBROMIDE
     Dosage: UNK
     Route: 065

REACTIONS (18)
  - Cellulitis [Not Recovered/Not Resolved]
  - Haematochezia [Recovered/Resolved]
  - Nervousness [Unknown]
  - Malaise [Unknown]
  - Panic attack [Unknown]
  - Crying [Unknown]
  - Fear of injection [Unknown]
  - Asthenia [Recovered/Resolved]
  - Diarrhoea [Recovered/Resolved]
  - Fatigue [Recovered/Resolved]
  - Infusion site erythema [Unknown]
  - Abdominal pain [Recovered/Resolved]
  - Nausea [Recovered/Resolved]
  - Gastroenteritis [Unknown]
  - Abdominal discomfort [Unknown]
  - Injection site discomfort [Unknown]
  - Injection site pain [Recovered/Resolved]
  - Multimorbidity [Unknown]

NARRATIVE: CASE EVENT DATE: 20201201
